FAERS Safety Report 5048039-X (Version None)
Quarter: 2006Q3

REPORT INFORMATION
  Report Type: 
  Country: None (occurrence: None)
  Receive Date: 20060711
  Receipt Date: 20060706
  Transmission Date: 20061208
  Serious: Yes (Other)
  Sender: FDA-Public Use
  Company Number: US-MERCK-0607USA00836

PATIENT
  Age: 84 Year
  Sex: Male

DRUGS (4)
  1. ZOCOR [Suspect]
     Indication: BLOOD CHOLESTEROL
     Route: 048
  2. ATENOLOL [Concomitant]
     Route: 065
  3. HYDROCHLOROTHIAZIDE [Concomitant]
     Route: 048
  4. AVAPRO [Concomitant]
     Route: 065

REACTIONS (2)
  - RASH PRURITIC [None]
  - SKIN DISCOLOURATION [None]
